FAERS Safety Report 16930795 (Version 1)
Quarter: 2019Q4

REPORT INFORMATION
  Report Type: Spontaneous
  Country: US (occurrence: US)
  Receive Date: 20191017
  Receipt Date: 20191017
  Transmission Date: 20200122
  Serious: No
  Sender: FDA-Public Use
  Company Number: US-PFIZER INC-2019445765

PATIENT
  Age: 41 Year
  Sex: Female
  Weight: 72.57 kg

DRUGS (1)
  1. SUTENT [Suspect]
     Active Substance: SUNITINIB MALATE
     Indication: MALIGNANT MELANOMA
     Dosage: 25 MG, 1X/DAY(DOSING SCHEDULE FOR 6 MONTHS WITHOUT WEEKS OFF TREATMENT)
     Route: 048
     Dates: start: 201909

REACTIONS (4)
  - Vaginal haemorrhage [Not Recovered/Not Resolved]
  - Off label use [Unknown]
  - Vaginal disorder [Not Recovered/Not Resolved]
  - Product use in unapproved indication [Unknown]

NARRATIVE: CASE EVENT DATE: 201909
